FAERS Safety Report 15649565 (Version 2)
Quarter: 2019Q1

REPORT INFORMATION
  Report Type: Report from Study
  Country: US (occurrence: US)
  Receive Date: 20181122
  Receipt Date: 20190102
  Transmission Date: 20190417
  Serious: Yes (Other)
  Sender: FDA-Public Use
  Company Number: US-AMGEN INC.-USASL2018160452

PATIENT
  Age: 67 Year
  Sex: Female
  Weight: 68.93 kg

DRUGS (14)
  1. AMITRIPTYLINE [Concomitant]
     Active Substance: AMITRIPTYLINE
     Dosage: 25 MG, AS NECESSARY
     Route: 048
     Dates: start: 20180529
  2. LIPITOR [Concomitant]
     Active Substance: ATORVASTATIN CALCIUM
  3. DEPAKOTE [Concomitant]
     Active Substance: DIVALPROEX SODIUM
     Dosage: 250 MG, BID
     Route: 048
  4. AIMOVIG [Suspect]
     Active Substance: ERENUMAB-AOOE
     Indication: MIGRAINE WITHOUT AURA
     Dosage: 140 MG, QMO
     Route: 058
     Dates: start: 20180621
  5. TOPAMAX [Concomitant]
     Active Substance: TOPIRAMATE
     Dosage: 50 MG, QHS (UNABLE TO INCREASE HIGHER THAN 50 MG QHS)
  6. PROPRANOLOL [Concomitant]
     Active Substance: PROPRANOLOL HYDROCHLORIDE
     Dosage: UNK
  7. CLARITIN [Concomitant]
     Active Substance: LORATADINE
     Dosage: 10 MG, QD
     Route: 048
     Dates: start: 20181203
  8. ATORVASTATIN [Concomitant]
     Active Substance: ATORVASTATIN
     Dosage: 10 MG, QD
     Route: 048
     Dates: start: 20180529
  9. MELATONIN [Concomitant]
     Active Substance: MELATONIN
     Dosage: 5 MG, TID
     Dates: start: 20180529
  10. TYLENOL [Concomitant]
     Active Substance: ACETAMINOPHEN
     Dosage: 325 MG, Q4H (AS NEEDED)
     Route: 048
     Dates: start: 20180529
  11. IBUPROFEN. [Concomitant]
     Active Substance: IBUPROFEN
     Dosage: 200 MG, Q6H (AS NEEDED WITH FOOD)
     Route: 048
     Dates: start: 20180529
  12. TOPIRAMATE. [Concomitant]
     Active Substance: TOPIRAMATE
     Dosage: 50 MG, BID
     Route: 048
     Dates: start: 20180529
  13. RIZATRIPTAN. [Concomitant]
     Active Substance: RIZATRIPTAN
     Dosage: 10 MG, Q2H (MAY REPEAT AT 2 HOUR INTERVALS)
     Route: 048
     Dates: start: 20180529
  14. MAXALT [Concomitant]
     Active Substance: RIZATRIPTAN BENZOATE
     Dosage: UNK UNK, AS NECESSARY

REACTIONS (5)
  - Productive cough [Unknown]
  - Urticaria [Not Recovered/Not Resolved]
  - Upper-airway cough syndrome [Unknown]
  - Nasal congestion [Unknown]
  - Underdose [Unknown]

NARRATIVE: CASE EVENT DATE: 2018
